FAERS Safety Report 9232842 (Version 1)
Quarter: 2013Q2

REPORT INFORMATION
  Report Type: Spontaneous
  Country: DE (occurrence: None)
  Receive Date: 20130412
  Receipt Date: 20130412
  Transmission Date: 20140414
  Serious: Yes (Life-Threatening)
  Sender: FDA-Public Use
  Company Number: 2013MPI00203

PATIENT
  Age: 41 Year
  Sex: Female

DRUGS (1)
  1. ADCETRIS (BRENTUXIMAB VEDOTIN) INJECTION [Suspect]
     Route: 042
     Dates: start: 20130312

REACTIONS (1)
  - Histiocytosis haematophagic [None]
